FAERS Safety Report 5983903-6 (Version None)
Quarter: 2008Q4

REPORT INFORMATION
  Report Type: 
  Country: None (occurrence: None)
  Receive Date: 20081208
  Receipt Date: 20081120
  Transmission Date: 20090506
  Serious: Yes (Life-Threatening, Hospitalization, Other)
  Sender: FDA-Public Use
  Company Number: AR-PFIZER INC-2008099683

PATIENT
  Sex: Male
  Weight: 69 kg

DRUGS (7)
  1. BLINDED *EFAVIRENZ [Suspect]
     Indication: HIV INFECTION
     Route: 048
     Dates: start: 20060415
  2. BLINDED *PLACEBO [Suspect]
     Indication: HIV INFECTION
     Route: 048
     Dates: start: 20060415
  3. BLINDED MARAVIROC [Suspect]
     Indication: HIV INFECTION
     Route: 048
     Dates: start: 20060415
  4. COMBIVIR [Suspect]
     Indication: HIV INFECTION
     Route: 048
     Dates: start: 20060315
  5. ASPIRIN [Concomitant]
     Route: 048
     Dates: start: 20060529
  6. ATENOLOL [Concomitant]
     Route: 048
     Dates: start: 20061211
  7. ENALAPRIL MALEATE [Concomitant]
     Route: 048
     Dates: start: 20080110

REACTIONS (5)
  - ACUTE CORONARY SYNDROME [None]
  - ANGINA UNSTABLE [None]
  - CORONARY ARTERY OCCLUSION [None]
  - HEART INJURY [None]
  - SUPERINFECTION [None]
